FAERS Safety Report 8533361-2 (Version None)
Quarter: 2012Q3

REPORT INFORMATION
  Report Type: 
  Country: None (occurrence: None)
  Receive Date: 20120724
  Receipt Date: 20120718
  Transmission Date: 20120928
  Serious: Yes (Other)
  Sender: FDA-Public Use
  Company Number: PHEH2012US012214

PATIENT
  Sex: Female

DRUGS (10)
  1. AFINITOR [Suspect]
     Dosage: 7.5 MG, DAILY
     Route: 048
  2. AMBIEN [Concomitant]
  3. PHENOBARBITAL TAB [Concomitant]
  4. SIMVASTATIN [Concomitant]
  5. LORAZEPAM [Concomitant]
  6. LEVOTHYROXINE SODIUM [Concomitant]
  7. PROZAC [Concomitant]
  8. AFINITOR [Suspect]
     Indication: TUBEROUS SCLEROSIS
     Dosage: 10 MG, DAILY
     Route: 048
     Dates: start: 20120514, end: 20120625
  9. ALBUTEROL [Concomitant]
  10. LISINOPRIL [Concomitant]

REACTIONS (4)
  - ANGIOMYOLIPOMA [None]
  - MENTAL IMPAIRMENT [None]
  - FATIGUE [None]
  - DECREASED APPETITE [None]
